FAERS Safety Report 8758838 (Version 5)
Quarter: 2013Q1

REPORT INFORMATION
  Report Type: Spontaneous
  Country: CA (occurrence: CA)
  Receive Date: 20120829
  Receipt Date: 20130115
  Transmission Date: 20140127
  Serious: Yes (Other)
  Sender: FDA-Public Use
  Company Number: PHHY2012CA073846

PATIENT
  Age: 50 Year
  Sex: Female

DRUGS (2)
  1. ZOMETA [Suspect]
     Indication: BREAST CANCER
     Dosage: 4 MG, EVERY 4 WEEKS
     Route: 042
     Dates: start: 20120110
  2. ZOMETA [Suspect]
     Dosage: 3 MG, EVERY 4 WEEKS
     Route: 042
     Dates: start: 20120110

REACTIONS (4)
  - Mobility decreased [Unknown]
  - Blood pressure decreased [Unknown]
  - Bronchitis [Unknown]
  - Pyrexia [Unknown]
